FAERS Safety Report 17283008 (Version 2)
Quarter: 2020Q1

REPORT INFORMATION
  Report Type: Spontaneous
  Country: US (occurrence: US)
  Receive Date: 20200117
  Receipt Date: 20200120
  Transmission Date: 20200409
  Serious: Yes (Other)
  Sender: FDA-Public Use
  Company Number: US-TEVA-2020-US-1168387

PATIENT
  Sex: Female

DRUGS (1)
  1. COPAXONE [Suspect]
     Active Substance: GLATIRAMER ACETATE

REACTIONS (8)
  - Cataract [Unknown]
  - Weight decreased [Unknown]
  - Stress [Unknown]
  - Injection site pruritus [Unknown]
  - Visual impairment [Unknown]
  - Injection site bruising [Unknown]
  - Stress at work [Unknown]
  - Wrong technique in product usage process [Unknown]
